FAERS Safety Report 16545115 (Version 1)
Quarter: 2019Q3

REPORT INFORMATION
  Report Type: Spontaneous
  Country: US (occurrence: US)
  Receive Date: 20190708
  Receipt Date: 20190708
  Transmission Date: 20191004
  Serious: Yes (Hospitalization)
  Sender: FDA-Public Use
  Company Number: None

PATIENT
  Age: 72 Year
  Sex: Female
  Weight: 83.3 kg

DRUGS (16)
  1. MEKTOVI [Suspect]
     Active Substance: BINIMETINIB
     Indication: PLASMA CELL MYELOMA
     Route: 048
     Dates: start: 20190705
  2. MEKTOVI [Suspect]
     Active Substance: BINIMETINIB
     Indication: ACUTE MYELOID LEUKAEMIA
     Route: 048
     Dates: start: 20190705
  3. ALLOPURINOL. [Concomitant]
     Active Substance: ALLOPURINOL
  4. DECADRON [Concomitant]
     Active Substance: DEXAMETHASONE
  5. FOSAMAX [Concomitant]
     Active Substance: ALENDRONATE SODIUM
  6. ZANTAC [Concomitant]
     Active Substance: RANITIDINE HYDROCHLORIDE
  7. ACYCLOVIR. [Concomitant]
     Active Substance: ACYCLOVIR
  8. MAGNESIUM ASPARTATE [Concomitant]
     Active Substance: MAGNESIUM ASPARTATE
  9. ADVIL [Concomitant]
     Active Substance: IBUPROFEN
  10. NEXIUM [Concomitant]
     Active Substance: ESOMEPRAZOLE MAGNESIUM
  11. ZYRTEC [Concomitant]
     Active Substance: CETIRIZINE HYDROCHLORIDE
  12. DIFLUCAN [Concomitant]
     Active Substance: FLUCONAZOLE
  13. XANAX [Concomitant]
     Active Substance: ALPRAZOLAM
  14. VITAMIN D [Concomitant]
     Active Substance: VITAMIN D NOS
  15. ALDACTONE [Concomitant]
     Active Substance: SPIRONOLACTONE
  16. LASIX [Concomitant]
     Active Substance: FUROSEMIDE

REACTIONS (1)
  - Hospitalisation [None]

NARRATIVE: CASE EVENT DATE: 20190708
